FAERS Safety Report 7522880-3 (Version None)
Quarter: 2011Q2

REPORT INFORMATION
  Report Type: 
  Country: None (occurrence: None)
  Receive Date: 20110603
  Receipt Date: 20110520
  Transmission Date: 20111010
  Serious: Yes (Other)
  Sender: FDA-Public Use
  Company Number: ZA-JNJFOC-20110509843

PATIENT
  Sex: Female
  Weight: 70 kg

DRUGS (1)
  1. REVELLEX [Suspect]
     Indication: PSORIATIC ARTHROPATHY
     Route: 042
     Dates: start: 20110308, end: 20110517

REACTIONS (1)
  - DISSEMINATED TUBERCULOSIS [None]
